FAERS Safety Report 10010700 (Version 1)
Quarter: 2014Q1

REPORT INFORMATION
  Report Type: Spontaneous
  Country: US (occurrence: US)
  Receive Date: 20140314
  Receipt Date: 20140314
  Transmission Date: 20141002
  Serious: Yes (Other)
  Sender: FDA-Public Use
  Company Number: US-BAYER-2014-034590

PATIENT
  Age: 66 Year
  Sex: Female

DRUGS (5)
  1. BETASERON [Suspect]
     Indication: MULTIPLE SCLEROSIS
     Dosage: UNK
     Dates: start: 2001, end: 2013
  2. BETASERON [Suspect]
     Indication: MULTIPLE SCLEROSIS
     Dosage: 0.25 MG/ML, BID
     Dates: start: 2013
  3. ZOCOR [Suspect]
     Indication: BLOOD CHOLESTEROL INCREASED
  4. NORVASC [Concomitant]
  5. LISINOPRIL [Concomitant]
     Dosage: UNK

REACTIONS (8)
  - Swollen tongue [Recovered/Resolved]
  - Hypoaesthesia oral [Recovered/Resolved]
  - Haemoglobin abnormal [Not Recovered/Not Resolved]
  - Haematocrit abnormal [Not Recovered/Not Resolved]
  - Inappropriate schedule of drug administration [None]
  - Blood potassium abnormal [Not Recovered/Not Resolved]
  - Blood calcium abnormal [Not Recovered/Not Resolved]
  - Blood cholesterol increased [Not Recovered/Not Resolved]
